FAERS Safety Report 18112408 (Version 1)
Quarter: 2020Q3

REPORT INFORMATION
  Report Type: Spontaneous
  Country: PA (occurrence: PA)
  Receive Date: 20200805
  Receipt Date: 20200805
  Transmission Date: 20201103
  Serious: Yes (Other)
  Sender: FDA-Public Use
  Company Number: NVSC2019PA010942

PATIENT
  Age: 51 Year
  Sex: Female
  Weight: 69 kg

DRUGS (8)
  1. IRINOTECAN [Concomitant]
     Active Substance: IRINOTECAN
     Indication: METASTASES TO LIVER
     Dosage: 350 MG, UNKNOWN (CHEMOTHERAPY), EVERY 14 DAYS
     Route: 065
     Dates: start: 201909, end: 20200907
  2. OMEPRAZOLE. [Concomitant]
     Active Substance: OMEPRAZOLE
     Indication: GASTRIC ULCER
     Dosage: 1 DF, QD IN MORNING (THEY DISCONTINUED IT TEMPORARILY DUE TO THE CHEMOTHERAPY)
     Route: 065
     Dates: start: 202004, end: 202007
  3. OXALIPLATIN. [Suspect]
     Active Substance: OXALIPLATIN
     Indication: RENAL CANCER
     Dosage: 230 MG, ONCE/SINGLE (EVERY 21 DAYS)
     Route: 042
     Dates: start: 20191014
  4. ATENOLOL. [Concomitant]
     Active Substance: ATENOLOL
     Indication: HYPERTENSION
     Dosage: 100 MG, QD IN THE MORNING (STARTED NEARLY WHEN SHE WAS 45 YEARS OLD)
     Route: 048
  5. OXALIPLATIN. [Suspect]
     Active Substance: OXALIPLATIN
     Dosage: UNK, QD (DOSE DID NOT REMEMBER)
     Route: 042
     Dates: start: 2019, end: 2019
  6. AMLODIPINE BESILATE [Suspect]
     Active Substance: AMLODIPINE BESYLATE
     Indication: HYPERTENSION
     Dosage: 5 MG, QD AT NIGHT (STARTED NEARLY WHEN SHE WAS 48 YEARS OLD)
     Route: 048
  7. BEVACIZUMAB. [Concomitant]
     Active Substance: BEVACIZUMAB
     Indication: METASTASES TO LIVER
     Dosage: 350 MG, UNKNOWN (CHEMOTHERAPY), EVERY 14 DAYS
     Route: 065
     Dates: start: 201909, end: 20200907
  8. VERAPAMIL [Concomitant]
     Active Substance: VERAPAMIL HYDROCHLORIDE
     Indication: HYPERTENSION
     Dosage: 80 MG, QD
     Route: 048

REACTIONS (4)
  - Aphasia [Recovered/Resolved]
  - Dyspnoea [Recovered/Resolved]
  - Memory impairment [Unknown]
  - Wheezing [Not Recovered/Not Resolved]

NARRATIVE: CASE EVENT DATE: 20191014
